FAERS Safety Report 7791558-3 (Version None)
Quarter: 2011Q4

REPORT INFORMATION
  Report Type: 
  Country: None (occurrence: None)
  Receive Date: 20111003
  Receipt Date: 20110929
  Transmission Date: 20120403
  Serious: Yes (Other)
  Sender: FDA-Public Use
  Company Number: AU-ROXANE LABORATORIES, INC.-2011-DE-05515GD

PATIENT

DRUGS (2)
  1. MORPHINE [Suspect]
  2. PROPOFOL [Suspect]
     Indication: SEDATIVE THERAPY
     Route: 051

REACTIONS (2)
  - MUSCLE TWITCHING [None]
  - DYSKINESIA [None]
